FAERS Safety Report 26041010 (Version 3)
Quarter: 2025Q4

REPORT INFORMATION
  Report Type: Spontaneous
  Country: EU (occurrence: EU)
  Receive Date: 20251113
  Receipt Date: 20251121
  Transmission Date: 20260118
  Serious: Yes (Hospitalization)
  Sender: NOVARTIS
  Company Number: EU-002147023-NVSC2025DE173456

PATIENT
  Age: 85 Year
  Sex: Female

DRUGS (24)
  1. LETROZOLE [Suspect]
     Active Substance: LETROZOLE
     Indication: Breast cancer
     Dosage: 2.5 MG, QD
     Route: 048
     Dates: start: 20211220
  2. PALBOCICLIB [Suspect]
     Active Substance: PALBOCICLIB
     Indication: Breast cancer
     Dosage: 100 MG, CYCLICAL (100 MG, CYCLIC (DAILY FROM DAY 1 TO DAY 21 EVERY 28 DAY CYCLE)),
     Route: 048
     Dates: start: 20211220
  3. METAMIZOLE [Concomitant]
     Active Substance: METAMIZOLE
     Indication: Cervicobrachial syndrome
     Dosage: UNK
     Route: 048
  4. IBUPROFEN [Concomitant]
     Active Substance: IBUPROFEN
     Indication: Cervicobrachial syndrome
     Dosage: UNK
     Route: 048
  5. ACETAMINOPHEN [Concomitant]
     Active Substance: ACETAMINOPHEN
     Indication: Cervicobrachial syndrome
     Dosage: UNK
     Route: 048
  6. Doloctan forte [Concomitant]
     Indication: Polyneuropathy
     Dosage: UNK
     Route: 048
  7. ELIQUIS [Concomitant]
     Active Substance: APIXABAN
     Indication: Thrombosis
     Dosage: UNK
     Route: 048
  8. EUTHYROX [Concomitant]
     Active Substance: LEVOTHYROXINE SODIUM
     Indication: Thrombosis
     Dosage: UNK
     Route: 048
  9. BISOPROLOL FUMARATE\HYDROCHLOROTHIAZIDE [Concomitant]
     Active Substance: BISOPROLOL FUMARATE\HYDROCHLOROTHIAZIDE
     Indication: Blood pressure fluctuation
     Dosage: UNK
     Route: 048
  10. Calcium Sandoz D [Concomitant]
     Indication: Osteoporosis
     Dosage: UNK
     Route: 048
  11. AMBROXOL [Concomitant]
     Active Substance: AMBROXOL
     Indication: Bronchiectasis
     Dosage: UNK
     Route: 048
  12. ALBUTEROL [Concomitant]
     Active Substance: ALBUTEROL
     Indication: Bronchiectasis
     Dosage: UNK
     Route: 055
  13. TORSEMIDE [Concomitant]
     Active Substance: TORSEMIDE
     Indication: Oedema
     Dosage: UNK
     Route: 048
  14. HYDROMORPHONE [Concomitant]
     Active Substance: HYDROMORPHONE
     Indication: Cervicobrachial syndrome
     Dosage: UNK
     Route: 048
  15. EUCALYPTOL [Concomitant]
     Active Substance: EUCALYPTOL
     Indication: Bronchiectasis
     Dosage: UNK
     Route: 048
  16. Aspecton [Concomitant]
     Indication: Bronchiectasis
     Dosage: UNK
     Route: 045
  17. PANTOPRAZOLE [Concomitant]
     Active Substance: PANTOPRAZOLE
     Indication: Prophylaxis
     Dosage: UNK
     Route: 048
     Dates: start: 20211209
  18. CHOLESTYRAMINE [Concomitant]
     Active Substance: CHOLESTYRAMINE
     Indication: Short-bowel syndrome
     Dosage: UNK
     Route: 048
     Dates: start: 20211209
  19. PANCRELIPASE [Concomitant]
     Active Substance: PANCRELIPASE
     Indication: Short-bowel syndrome
     Dosage: UNK
     Route: 048
     Dates: start: 20211209
  20. MCP [Concomitant]
     Active Substance: METOCLOPRAMIDE HYDROCHLORIDE
     Indication: Prophylaxis
     Dosage: UNK
     Route: 048
     Dates: start: 20211218
  21. VITAMINS [Concomitant]
     Active Substance: VITAMINS
     Indication: Short-bowel syndrome
     Dosage: UNK
     Route: 042
     Dates: start: 20211223, end: 20220401
  22. AMINO ACIDS\DEXTROSE\ELECTROLYTES NOS\SOYBEAN OIL [Concomitant]
     Active Substance: AMINO ACIDS\DEXTROSE\ELECTROLYTES NOS\SOYBEAN OIL
     Indication: Short-bowel syndrome
     Dosage: UNK
     Route: 042
     Dates: start: 20211223, end: 20220401
  23. CHROMIC CHLORIDE\CUPROUS CHLORIDE\FERRIC CHLORIDE\MANGANESE CHLORIDE\P [Concomitant]
     Active Substance: CHROMIC CHLORIDE\CUPROUS CHLORIDE\FERRIC CHLORIDE\MANGANESE CHLORIDE\POTASSIUM IODIDE\SODIUM FLUORID
     Indication: Short-bowel syndrome
     Dosage: UNK
     Route: 042
     Dates: start: 20211223, end: 20220401
  24. TRIMIPRAMINE [Concomitant]
     Active Substance: TRIMIPRAMINE
     Indication: Depression
     Dosage: UNK
     Route: 048
     Dates: start: 20220117

REACTIONS (3)
  - Pneumonia [Recovered/Resolved]
  - Pleuritic pain [Recovered/Resolved]
  - Bronchitis [Recovered/Resolved]

NARRATIVE: CASE EVENT DATE: 20250912
